FAERS Safety Report 13849707 (Version 3)
Quarter: 2017Q3

REPORT INFORMATION
  Report Type: Spontaneous
  Country: US (occurrence: US)
  Receive Date: 20170809
  Receipt Date: 20170921
  Transmission Date: 20171127
  Serious: No
  Sender: FDA-Public Use
  Company Number: US-PFIZER INC-2017342727

PATIENT
  Age: 80 Year
  Sex: Female
  Weight: 69.4 kg

DRUGS (2)
  1. LOVENOX [Concomitant]
     Active Substance: ENOXAPARIN SODIUM
     Indication: PULMONARY THROMBOSIS
     Dosage: UNK (SHOT EVERY DAY)
     Dates: start: 201705
  2. IBRANCE [Suspect]
     Active Substance: PALBOCICLIB
     Indication: BREAST CANCER STAGE IV
     Dosage: 125 MG, CYCLIC (ONE CAPSULE EVERY DAY FOR 21 DAYS, THEN OFF FOR 7 DAYS)
     Dates: start: 201610, end: 201708

REACTIONS (1)
  - White blood cell count abnormal [Recovered/Resolved]

NARRATIVE: CASE EVENT DATE: 201707
